FAERS Safety Report 6836413-8 (Version None)
Quarter: 2010Q3

REPORT INFORMATION
  Report Type: 
  Country: None (occurrence: None)
  Receive Date: 20100713
  Receipt Date: 20100701
  Transmission Date: 20110219
  Serious: Yes (Disabling, Other)
  Sender: FDA-Public Use
  Company Number: BR-PFIZER INC-2010060456

PATIENT
  Age: 40 Year
  Sex: Male
  Weight: 102 kg

DRUGS (4)
  1. LYRICA [Suspect]
     Indication: INSOMNIA
     Dosage: 300 MG DAILY
     Route: 048
     Dates: start: 20100101, end: 20100101
  2. LYRICA [Suspect]
     Indication: DEPRESSION
  3. SERTRALINE [Concomitant]
     Indication: DEPRESSION
     Dosage: UNK
  4. NORTRIPTYLINE [Concomitant]
     Indication: DEPRESSION
     Dosage: UNK

REACTIONS (7)
  - EMOTIONAL DISORDER [None]
  - FEELING ABNORMAL [None]
  - INSOMNIA [None]
  - MEMORY IMPAIRMENT [None]
  - OEDEMA PERIPHERAL [None]
  - RASH [None]
  - WOUND [None]
